FAERS Safety Report 6563610-1 (Version None)
Quarter: 2010Q1

REPORT INFORMATION
  Report Type: 
  Country: None (occurrence: None)
  Receive Date: 20100130
  Receipt Date: 20091216
  Transmission Date: 20100710
  Serious: No
  Sender: FDA-Public Use
  Company Number: US-ABBOTT-09P-163-0615708-00

PATIENT
  Sex: Male
  Weight: 79.45 kg

DRUGS (11)
  1. HUMIRA [Suspect]
     Indication: RHEUMATOID ARTHRITIS
     Dates: start: 20090101
  2. METHOTREXATE [Concomitant]
     Indication: RHEUMATOID ARTHRITIS
  3. HYDROCHLORAQUIN [Concomitant]
     Indication: RHEUMATOID ARTHRITIS
  4. PREDNISONE [Concomitant]
     Indication: RHEUMATOID ARTHRITIS
  5. OMEPRAZOLE [Concomitant]
     Indication: DYSPEPSIA
  6. VITAMIN D [Concomitant]
     Indication: ROUTINE HEALTH MAINTENANCE
  7. ZINC [Concomitant]
     Indication: ROUTINE HEALTH MAINTENANCE
  8. VITAMIN C [Concomitant]
     Indication: ROUTINE HEALTH MAINTENANCE
  9. CALCIUM [Concomitant]
     Indication: ROUTINE HEALTH MAINTENANCE
  10. MAGNESIUM [Concomitant]
     Indication: ROUTINE HEALTH MAINTENANCE
  11. ASPIRIN [Concomitant]
     Indication: ROUTINE HEALTH MAINTENANCE

REACTIONS (6)
  - DIARRHOEA [None]
  - FATIGUE [None]
  - H1N1 INFLUENZA [None]
  - HEADACHE [None]
  - PYREXIA [None]
  - RHINORRHOEA [None]
